FAERS Safety Report 19536550 (Version 1)
Quarter: 2021Q3

REPORT INFORMATION
  Report Type: Spontaneous
  Country: IT (occurrence: IT)
  Receive Date: 20210714
  Receipt Date: 20210714
  Transmission Date: 20211014
  Serious: Yes (Death)
  Sender: FDA-Public Use
  Company Number: IT-JNJFOC-20210721755

PATIENT
  Age: 88 Year
  Sex: Male

DRUGS (1)
  1. ILOPROST. [Suspect]
     Active Substance: ILOPROST
     Indication: PULMONARY ARTERIAL HYPERTENSION
     Route: 042
     Dates: end: 202105

REACTIONS (1)
  - Death [Fatal]
